FAERS Safety Report 12485601 (Version 3)
Quarter: 2016Q4

REPORT INFORMATION
  Report Type: Report from Study
  Country: US (occurrence: US)
  Receive Date: 20160621
  Receipt Date: 20161104
  Transmission Date: 20170207
  Serious: Yes (Other)
  Sender: FDA-Public Use
  Company Number: US-JNJFOC-20160616470

PATIENT
  Age: 74 Year
  Sex: Male

DRUGS (13)
  1. FISH OIL W/TOCOPHEROL [Concomitant]
  2. ATENOLOL. [Concomitant]
     Active Substance: ATENOLOL
  3. NORVASC [Concomitant]
     Active Substance: AMLODIPINE BESYLATE
  4. MAGNESIUM [Concomitant]
     Active Substance: MAGNESIUM
  5. ACCUPRIL [Concomitant]
     Active Substance: QUINAPRIL HYDROCHLORIDE
  6. IMBRUVICA [Suspect]
     Active Substance: IBRUTINIB
     Indication: CHRONIC LYMPHOCYTIC LEUKAEMIA
     Route: 048
     Dates: start: 20160601
  7. ALBUTEROL. [Concomitant]
     Active Substance: ALBUTEROL
  8. FERROUS SULFATE. [Concomitant]
     Active Substance: FERROUS SULFATE
  9. COUMADIN [Concomitant]
     Active Substance: WARFARIN SODIUM
  10. GLIMEPIRIDE. [Concomitant]
     Active Substance: GLIMEPIRIDE
  11. METFORMIN [Concomitant]
     Active Substance: METFORMIN HYDROCHLORIDE
  12. JANUVIA [Concomitant]
     Active Substance: SITAGLIPTIN PHOSPHATE
  13. SIMVASTATIN. [Concomitant]
     Active Substance: SIMVASTATIN

REACTIONS (8)
  - Pain [Unknown]
  - Dry mouth [Not Recovered/Not Resolved]
  - Contusion [Unknown]
  - Oropharyngeal pain [Not Recovered/Not Resolved]
  - Weight decreased [Unknown]
  - Haemoptysis [Not Recovered/Not Resolved]
  - Fatigue [Not Recovered/Not Resolved]
  - Cough [Not Recovered/Not Resolved]

NARRATIVE: CASE EVENT DATE: 2016
